FAERS Safety Report 5322594-4 (Version None)
Quarter: 2007Q2

REPORT INFORMATION
  Report Type: 
  Country: None (occurrence: None)
  Receive Date: 20070511
  Receipt Date: 20070501
  Transmission Date: 20071010
  Serious: Yes (Hospitalization, Other)
  Sender: FDA-Public Use
  Company Number: CA-ABBOTT-07P-028-0363528-00

PATIENT
  Sex: Male

DRUGS (3)
  1. HUMIRA [Suspect]
     Indication: RHEUMATOID ARTHRITIS
     Route: 058
     Dates: start: 20060516
  2. CIPROFLOXACIN [Suspect]
     Indication: URINARY TRACT INFECTION
     Dates: start: 20070307, end: 20070317
  3. CIPROFLOXACIN [Suspect]
     Indication: KIDNEY INFECTION

REACTIONS (4)
  - ABDOMINAL PAIN [None]
  - ANAL ULCER [None]
  - PENILE ULCERATION [None]
  - STEVENS-JOHNSON SYNDROME [None]
